FAERS Safety Report 13470875 (Version 2)
Quarter: 2017Q2

REPORT INFORMATION
  Report Type: Spontaneous
  Country: FR (occurrence: FR)
  Receive Date: 20170424
  Receipt Date: 20170528
  Transmission Date: 20170830
  Serious: Yes (Hospitalization, Other)
  Sender: FDA-Public Use
  Company Number: FR-ABBVIE-17K-056-1950713-00

PATIENT
  Age: 46 Year
  Sex: Female
  Weight: 75 kg

DRUGS (1)
  1. HUMIRA [Suspect]
     Active Substance: ADALIMUMAB
     Indication: RHEUMATOID ARTHRITIS
     Route: 058
     Dates: start: 201612, end: 2017

REACTIONS (5)
  - Tuberculosis [Unknown]
  - Spleen disorder [Unknown]
  - Hepatic neoplasm [Unknown]
  - Sarcoidosis [Unknown]
  - Arthritis [Unknown]

NARRATIVE: CASE EVENT DATE: 2017
